FAERS Safety Report 5501269-2 (Version None)
Quarter: 2007Q4

REPORT INFORMATION
  Report Type: 
  Country: None (occurrence: None)
  Receive Date: 20071029
  Receipt Date: 20071023
  Transmission Date: 20080405
  Serious: Yes (Hospitalization, Other)
  Sender: FDA-Public Use
  Company Number: US-MERCK-0605USA03393

PATIENT
  Age: 50 Year
  Sex: Female

DRUGS (3)
  1. FOSAMAX [Suspect]
     Indication: OSTEOPOROSIS
     Route: 048
     Dates: end: 20051101
  2. FOSAMAX [Suspect]
     Route: 048
     Dates: start: 20020101, end: 20020318
  3. [THERAPY UNSPECIFIED] [Concomitant]
     Indication: PAIN
     Route: 065

REACTIONS (31)
  - AFFERENT LOOP SYNDROME [None]
  - ANAEMIA OF CHRONIC DISEASE [None]
  - ANXIETY [None]
  - BONE DISORDER [None]
  - CHEILITIS [None]
  - DENTAL CARIES [None]
  - DEPRESSION [None]
  - DYSPHAGIA [None]
  - EDENTULOUS [None]
  - EMOTIONAL DISORDER [None]
  - EXOSTOSIS [None]
  - FISTULA [None]
  - GINGIVAL BLEEDING [None]
  - GINGIVAL DISORDER [None]
  - IMPAIRED HEALING [None]
  - LOWER LIMB FRACTURE [None]
  - OBSTRUCTION GASTRIC [None]
  - OEDEMA MOUTH [None]
  - ORAL INFECTION [None]
  - ORAL PAIN [None]
  - ORAL TORUS [None]
  - OSTEOMA [None]
  - OSTEONECROSIS [None]
  - PAIN IN JAW [None]
  - PANIC ATTACK [None]
  - PYREXIA [None]
  - STOMATITIS [None]
  - TONGUE ULCERATION [None]
  - TOOTH ABSCESS [None]
  - TOOTH EROSION [None]
  - WEIGHT DECREASED [None]
